FAERS Safety Report 8990895 (Version 1)
Quarter: 2012Q4

REPORT INFORMATION
  Report Type: Spontaneous
  Country: GB (occurrence: None)
  Receive Date: 20121221
  Receipt Date: 20121221
  Transmission Date: 20130627
  Serious: Yes (Hospitalization)
  Sender: FDA-Public Use
  Company Number: INT_00174_2012

PATIENT
  Age: 9 Year
  Sex: Female

DRUGS (11)
  1. MEROPENEM [Suspect]
     Indication: PRODUCT USED FOR UNKNOWN INDICATION
     Dosage: (1 g TID Intravenous (not otherwise specified))
     Route: 042
     Dates: start: 20120120, end: 20121120
  2. AZITHROMYCIN [Concomitant]
  3. COLECALCIFEROL [Concomitant]
  4. COLOMYCIN /00013203/ [Concomitant]
  5. CREON [Concomitant]
  6. DORNASE ALFA [Concomitant]
  7. FLUCLOXACILLIN [Concomitant]
  8. PREDNISOLONE [Concomitant]
  9. VITAMINE A [Concomitant]
  10. VITAMIN D /00107901/ [Concomitant]
  11. VITAMINE E [Concomitant]

REACTIONS (1)
  - Drug hypersensitivity [None]
